FAERS Safety Report 15926470 (Version 1)
Quarter: 2019Q1

REPORT INFORMATION
  Report Type: Spontaneous
  Country: US (occurrence: US)
  Receive Date: 20190206
  Receipt Date: 20190206
  Transmission Date: 20190417
  Serious: No
  Sender: FDA-Public Use
  Company Number: US-MYLANLABS-2019M1005483

PATIENT
  Age: 87 Year
  Sex: Male

DRUGS (1)
  1. TRIFLUOPERAZINE [Suspect]
     Active Substance: TRIFLUOPERAZINE\TRIFLUOPERAZINE HYDROCHLORIDE
     Indication: ANXIETY
     Dosage: 2 MILLIGRAM
     Dates: start: 1958

REACTIONS (3)
  - Product use issue [Unknown]
  - Tardive dyskinesia [Unknown]
  - Withdrawal syndrome [Unknown]
